FAERS Safety Report 9302805 (Version 1)
Quarter: 2013Q2

REPORT INFORMATION
  Report Type: Spontaneous
  Country: US (occurrence: US)
  Receive Date: 20130522
  Receipt Date: 20130522
  Transmission Date: 20140414
  Serious: Yes (Hospitalization, Other)
  Sender: FDA-Public Use
  Company Number: US-BAYER-2013-061887

PATIENT
  Age: 28 Year
  Sex: Female
  Weight: 62.7 kg

DRUGS (1)
  1. YAZ [Suspect]
     Indication: CONTRACEPTION

REACTIONS (2)
  - Thrombophlebitis superficial [Recovering/Resolving]
  - Deep vein thrombosis [None]
